FAERS Safety Report 23456714 (Version 2)
Quarter: 2024Q2

REPORT INFORMATION
  Report Type: Spontaneous
  Country: US (occurrence: US)
  Receive Date: 20240130
  Receipt Date: 20240430
  Transmission Date: 20240715
  Serious: No
  Sender: FDA-Public Use
  Company Number: US-SANDOZ-SDZ2024US008690

PATIENT
  Sex: Female

DRUGS (2)
  1. GABAPENTIN [Suspect]
     Active Substance: GABAPENTIN
     Indication: Pain
     Dosage: UNK
     Route: 065
  2. KESIMPTA [Suspect]
     Active Substance: OFATUMUMAB
     Indication: Multiple sclerosis
     Dosage: 20 MG,  (ONCE A WEEK FOR 3 WEEKS, SKIP WEEK 4, THEN ON WEEK 5 START MONTHLY)
     Route: 058
     Dates: start: 20240116

REACTIONS (2)
  - Vomiting [Recovered/Resolved]
  - Headache [Not Recovered/Not Resolved]
